FAERS Safety Report 7820226-4 (Version None)
Quarter: 2011Q4

REPORT INFORMATION
  Report Type: 
  Country: None (occurrence: None)
  Receive Date: 20111018
  Receipt Date: 20111004
  Transmission Date: 20120403
  Serious: Yes (Other)
  Sender: FDA-Public Use
  Company Number: US-ELI_LILLY_AND_COMPANY-US201110001565

PATIENT
  Sex: Female

DRUGS (8)
  1. AMITRIPTYLINE HCL [Concomitant]
  2. CENTRUM [Concomitant]
  3. CALCIUM 500+D3 [Concomitant]
  4. HUMIRA [Concomitant]
  5. VITAMIN B-12 [Concomitant]
     Indication: ANAEMIA
     Dosage: UNK, MONTHLY (1/M)
  6. IRON [Concomitant]
  7. FORTEO [Suspect]
     Indication: OSTEOPOROSIS
     Dosage: 20 UG, QD
     Dates: start: 20110101, end: 20110401
  8. LISINOPRIL [Concomitant]

REACTIONS (7)
  - WEIGHT DECREASED [None]
  - RASH [None]
  - ASTHENIA [None]
  - NASOPHARYNGITIS [None]
  - SKIN CANCER [None]
  - NAUSEA [None]
  - APHAGIA [None]
